FAERS Safety Report 9664380 (Version 2)
Quarter: 2013Q4

REPORT INFORMATION
  Report Type: Report from Study
  Country: JP (occurrence: JP)
  Receive Date: 20131101
  Receipt Date: 20131101
  Transmission Date: 20140711
  Serious: Yes (Death, Hospitalization, Other)
  Sender: FDA-Public Use
  Company Number: JP-SA-THYM-1002010

PATIENT
  Age: 55 Year
  Sex: Male
  Weight: 75 kg

DRUGS (45)
  1. THYMOGLOBULINE [Suspect]
     Indication: APLASTIC ANAEMIA
     Dosage: 175 MG, QD
     Route: 042
     Dates: start: 20090401, end: 20090405
  2. FUROSEMIDE [Suspect]
     Indication: RENAL IMPAIRMENT
     Dosage: UNK
     Route: 065
     Dates: start: 20090414, end: 20090501
  3. FUROSEMIDE [Suspect]
     Indication: FACE OEDEMA
     Dosage: UNK
     Route: 065
     Dates: start: 20090414, end: 20090501
  4. FUROSEMIDE [Suspect]
     Indication: OEDEMA PERIPHERAL
     Dosage: UNK
     Route: 065
     Dates: start: 20090414, end: 20090501
  5. FUROSEMIDE [Suspect]
     Indication: RENAL IMPAIRMENT
     Dosage: UNK
     Route: 065
     Dates: start: 20090803, end: 20090819
  6. FUROSEMIDE [Suspect]
     Indication: FACE OEDEMA
     Dosage: UNK
     Route: 065
     Dates: start: 20090803, end: 20090819
  7. FUROSEMIDE [Suspect]
     Indication: OEDEMA PERIPHERAL
     Dosage: UNK
     Route: 065
     Dates: start: 20090803, end: 20090819
  8. DEFERASIROX [Concomitant]
     Indication: APLASTIC ANAEMIA
     Dosage: UNK
     Route: 065
     Dates: start: 20090325, end: 20090918
  9. DEFERASIROX [Concomitant]
     Indication: IRON OVERLOAD
     Dosage: UNK
     Route: 065
     Dates: start: 20090325, end: 20090918
  10. SPIRONOLACTONE [Concomitant]
     Indication: PROPHYLAXIS
     Dosage: UNK
     Route: 065
     Dates: start: 20090821, end: 20090827
  11. METHYLPREDNISOLONE SODIUM SUCCINATE [Concomitant]
     Indication: PREMEDICATION
     Dosage: UNK
     Route: 065
     Dates: start: 20090401, end: 20090405
  12. ENTECAVIR [Concomitant]
     Indication: ANTIVIRAL PROPHYLAXIS
     Dosage: UNK
     Route: 065
     Dates: start: 20090331, end: 20090402
  13. ENTECAVIR [Concomitant]
     Indication: APLASTIC ANAEMIA
     Dosage: UNK
     Route: 065
     Dates: start: 20090331, end: 20090402
  14. ENTECAVIR [Concomitant]
     Indication: ANTIVIRAL PROPHYLAXIS
     Dosage: UNK
     Route: 065
     Dates: start: 2009, end: 200909
  15. ENTECAVIR [Concomitant]
     Indication: APLASTIC ANAEMIA
     Dosage: UNK
     Route: 065
     Dates: start: 2009, end: 200909
  16. DEXCHLORPHENIRAMINE MALEATE [Concomitant]
     Indication: PREMEDICATION
     Dosage: UNK
     Route: 065
     Dates: start: 20090401, end: 20090401
  17. TEPRENONE [Concomitant]
     Indication: APLASTIC ANAEMIA
     Dosage: UNK
     Route: 065
     Dates: start: 20090405, end: 20090918
  18. TEPRENONE [Concomitant]
     Indication: PROPHYLAXIS
     Dosage: UNK
     Route: 065
     Dates: start: 20090405, end: 20090918
  19. FILGRASTIM [Concomitant]
     Indication: APLASTIC ANAEMIA
     Dosage: UNK
     Route: 065
     Dates: start: 20090406, end: 20090408
  20. FILGRASTIM [Concomitant]
     Indication: APLASTIC ANAEMIA
     Dosage: UNK
     Route: 065
     Dates: start: 20090526, end: 20090616
  21. FILGRASTIM [Concomitant]
     Indication: APLASTIC ANAEMIA
     Dosage: UNK
     Route: 065
     Dates: start: 20090721, end: 20090805
  22. FILGRASTIM [Concomitant]
     Indication: APLASTIC ANAEMIA
     Dosage: UNK
     Route: 065
     Dates: start: 20090825, end: 20090922
  23. MICAFUNGIN SODIUM [Concomitant]
     Indication: CYTOMEGALOVIRUS GASTROINTESTINAL INFECTION
     Dosage: UNK
     Route: 065
     Dates: start: 20090512, end: 20090522
  24. MICAFUNGIN SODIUM [Concomitant]
     Indication: INFECTION PROPHYLAXIS
     Dosage: UNK
     Route: 065
     Dates: start: 20090512, end: 20090522
  25. CEFEPIME HYDROCHLORIDE [Concomitant]
     Indication: CYTOMEGALOVIRUS INFECTION
     Dosage: UNK
     Route: 065
     Dates: start: 20090430, end: 20090502
  26. CEFEPIME HYDROCHLORIDE [Concomitant]
     Indication: INFECTION PROPHYLAXIS
     Dosage: UNK
     Route: 065
     Dates: start: 20090430, end: 20090502
  27. PIPERACILLIN [Concomitant]
     Indication: CYTOMEGALOVIRUS GASTROINTESTINAL INFECTION
     Dosage: UNK
     Route: 065
     Dates: start: 20090513, end: 20090526
  28. PIPERACILLIN [Concomitant]
     Indication: INFECTION PROPHYLAXIS
     Dosage: UNK
     Route: 065
     Dates: start: 20090513, end: 20090526
  29. MEROPENEM TRIHYDRATE [Concomitant]
     Indication: CYTOMEGALOVIRUS GASTROINTESTINAL INFECTION
     Dosage: UNK
     Route: 065
     Dates: start: 20090502, end: 20090511
  30. MEROPENEM TRIHYDRATE [Concomitant]
     Indication: INFECTION PROPHYLAXIS
     Dosage: UNK
     Route: 065
     Dates: start: 20090502, end: 20090511
  31. BIAPENEM [Concomitant]
     Indication: PROPHYLAXIS
     Dosage: UNK
     Route: 065
     Dates: start: 20090610, end: 20090623
  32. BIAPENEM [Concomitant]
     Indication: PROPHYLAXIS
     Dosage: UNK
     Route: 065
     Dates: start: 20090724, end: 20090806
  33. BIAPENEM [Concomitant]
     Indication: PROPHYLAXIS
     Dosage: UNK
     Route: 065
     Dates: start: 20090911, end: 20090921
  34. CEFOZOPRAN HYDROCHLORIDE [Concomitant]
     Indication: PROPHYLAXIS
     Dosage: UNK
     Route: 065
     Dates: start: 20090626, end: 20090709
  35. CEFOZOPRAN HYDROCHLORIDE [Concomitant]
     Indication: PROPHYLAXIS
     Dosage: UNK
     Route: 065
     Dates: start: 20090807, end: 20090820
  36. AMINO ACIDS [Concomitant]
     Indication: APLASTIC ANAEMIA
     Dosage: UNK
     Route: 065
     Dates: start: 20090731, end: 20090804
  37. FUROSEMIDE [Concomitant]
     Indication: PROPHYLAXIS
     Dosage: UNK
     Route: 065
     Dates: start: 20090821, end: 20090827
  38. IMMUNOGLOBULIN [Concomitant]
     Indication: APLASTIC ANAEMIA
     Dosage: UNK
     Route: 065
     Dates: start: 20090704, end: 20090706
  39. SULBACTAM [Concomitant]
     Indication: PROPHYLAXIS
     Dosage: UNK
     Route: 065
     Dates: start: 20090826, end: 20090908
  40. ARBEKACIN SULFATE [Concomitant]
     Indication: PROPHYLAXIS
     Dosage: UNK
     Route: 065
     Dates: start: 20090912, end: 20090922
  41. FLUCONAZOLE [Concomitant]
     Indication: PROPHYLAXIS
     Dosage: UNK
     Route: 065
     Dates: start: 20090408, end: 20090921
  42. RABEPRAZOLE SODIUM [Concomitant]
     Indication: PROPHYLAXIS
     Dosage: UNK
     Route: 065
     Dates: start: 20090410, end: 20090921
  43. PREDNISOLONE [Concomitant]
     Indication: APLASTIC ANAEMIA
     Dosage: UNK
     Route: 065
     Dates: start: 20090408, end: 20090421
  44. SULFAMETHOPRIM [Concomitant]
     Indication: PROPHYLAXIS
     Dosage: UNK
     Route: 065
     Dates: start: 20090408, end: 20090921
  45. ITRACONAZOLE [Concomitant]
     Indication: PROPHYLAXIS
     Dosage: UNK
     Route: 065
     Dates: start: 2009, end: 20090715

REACTIONS (15)
  - Aplastic anaemia [Fatal]
  - Atrial fibrillation [Recovered/Resolved]
  - Cytomegalovirus infection [Recovered/Resolved]
  - Cytomegalovirus infection [Fatal]
  - Arrhythmia [Recovered/Resolved]
  - Renal impairment [Recovered/Resolved]
  - Hypokalaemia [Recovered/Resolved]
  - Blood calcium decreased [Recovered/Resolved]
  - Face oedema [Recovered/Resolved]
  - Respiratory disorder [Unknown]
  - Palpitations [Unknown]
  - Oedema peripheral [Recovered/Resolved]
  - Abdominal pain upper [Recovered/Resolved]
  - Pyrexia [Recovered/Resolved]
  - Therapeutic response decreased [Unknown]
